FAERS Safety Report 9934601 (Version 3)
Quarter: 2014Q1

REPORT INFORMATION
  Report Type: Report from Study
  Country: US (occurrence: US)
  Receive Date: 20140228
  Receipt Date: 20140314
  Transmission Date: 20141002
  Serious: Yes (Death, Hospitalization)
  Sender: FDA-Public Use
  Company Number: US-ACTELION-A-US2014-95177

PATIENT
  Age: 19 Year
  Sex: Male

DRUGS (15)
  1. VELETRI [Suspect]
     Indication: PULMONARY ARTERIAL HYPERTENSION
     Dosage: 18 NG/KG, PER MIN
     Route: 042
     Dates: start: 201104, end: 20140221
  2. SILDENAFIL [Concomitant]
  3. WARFARIN [Concomitant]
  4. MILRINONE [Concomitant]
  5. TORSEMIDE [Concomitant]
  6. SPIRONOLACTONE [Concomitant]
  7. AMIODARONE [Concomitant]
  8. PINDOLOL [Concomitant]
  9. HYDROCHLOROTHIAZIDE [Concomitant]
  10. SINGULAIR [Concomitant]
  11. FLOVENT [Concomitant]
  12. LEVOTHYROXINE [Concomitant]
  13. RANITIDINE [Concomitant]
  14. POTASSIUM [Concomitant]
  15. MAGNESIUM [Concomitant]

REACTIONS (4)
  - Cardiac failure [Fatal]
  - Fluid overload [Fatal]
  - Dyspnoea [Fatal]
  - Renal failure acute [Unknown]
